FAERS Safety Report 16828845 (Version 3)
Quarter: 2019Q4

REPORT INFORMATION
  Report Type: Report from Study
  Country: US (occurrence: US)
  Receive Date: 20190919
  Receipt Date: 20191217
  Transmission Date: 20200122
  Serious: No
  Sender: FDA-Public Use
  Company Number: PHEH2019US038690

PATIENT
  Sex: Male

DRUGS (1)
  1. COSENTYX [Suspect]
     Active Substance: SECUKINUMAB
     Indication: PSORIASIS
     Dosage: UNK
     Route: 058
     Dates: start: 20190115

REACTIONS (2)
  - Psoriasis [Not Recovered/Not Resolved]
  - Drug ineffective [Not Recovered/Not Resolved]
